FAERS Safety Report 4700964-2 (Version None)
Quarter: 2005Q2

REPORT INFORMATION
  Report Type: 
  Country: None (occurrence: None)
  Receive Date: 20050628
  Receipt Date: 20050624
  Transmission Date: 20051028
  Serious: Yes (Other)
  Sender: FDA-Public Use
  Company Number: US-JNJFOC-20050404629

PATIENT
  Sex: Female
  Weight: 25.86 kg

DRUGS (1)
  1. DITROPAN XL [Suspect]
     Route: 049

REACTIONS (2)
  - DELUSION [None]
  - OBSESSIVE-COMPULSIVE DISORDER [None]
